FAERS Safety Report 6290979-8 (Version None)
Quarter: 2009Q3

REPORT INFORMATION
  Report Type: 
  Country: None (occurrence: None)
  Receive Date: 20090730
  Receipt Date: 20090720
  Transmission Date: 20100115
  Serious: Yes (Other)
  Sender: FDA-Public Use
  Company Number: KR-PFIZER INC-2009239750

PATIENT
  Age: 56 Year

DRUGS (1)
  1. HALCION [Suspect]
     Indication: INSOMNIA
     Dosage: 0.25 MG, 1X/DAY
     Route: 048
     Dates: start: 20010908, end: 20080626

REACTIONS (3)
  - GLOSSODYNIA [None]
  - PARALYSIS [None]
  - TONGUE PARALYSIS [None]
